FAERS Safety Report 9722100 (Version 1)
Quarter: 2013Q4

REPORT INFORMATION
  Report Type: Spontaneous
  Country: US (occurrence: US)
  Receive Date: 20131202
  Receipt Date: 20131202
  Transmission Date: 20140711
  Serious: No
  Sender: FDA-Public Use
  Company Number: US-BIOGENIDEC-2013BI112904

PATIENT
  Sex: Female

DRUGS (1)
  1. AVONEX [Suspect]
     Indication: MULTIPLE SCLEROSIS
     Route: 030
     Dates: start: 20010625

REACTIONS (4)
  - Adverse event [Recovered/Resolved]
  - Visual impairment [Not Recovered/Not Resolved]
  - Disability [Not Recovered/Not Resolved]
  - Pyrexia [Recovered/Resolved]
